FAERS Safety Report 6248113-6 (Version None)
Quarter: 2009Q2

REPORT INFORMATION
  Report Type: 
  Country: None (occurrence: None)
  Receive Date: 20090629
  Receipt Date: 20090622
  Transmission Date: 20091009
  Serious: Yes (Hospitalization)
  Sender: FDA-Public Use
  Company Number: US-CELGENEUS-163-21880-09061678

PATIENT
  Sex: Female
  Weight: 63.106 kg

DRUGS (1)
  1. REVLIMID [Suspect]
     Indication: MULTIPLE MYELOMA
     Route: 048
     Dates: start: 20090123

REACTIONS (3)
  - CARDIAC DISORDER [None]
  - JOINT SWELLING [None]
  - OEDEMA PERIPHERAL [None]
